FAERS Safety Report 14544735 (Version 1)
Quarter: 2018Q1

REPORT INFORMATION
  Report Type: Spontaneous
  Country: FR (occurrence: FR)
  Receive Date: 20180217
  Receipt Date: 20180217
  Transmission Date: 20180509
  Serious: Yes (Hospitalization)
  Sender: FDA-Public Use
  Company Number: FR-AUROBINDO-AUR-APL-2018-007221

PATIENT
  Age: 88 Year
  Sex: Female

DRUGS (1)
  1. ACICLOVIR [Suspect]
     Active Substance: ACYCLOVIR
     Indication: HERPES ZOSTER
     Dosage: UNK
     Route: 048
     Dates: start: 20180107, end: 20180112

REACTIONS (5)
  - Dyspnoea [Recovered/Resolved]
  - Rash maculo-papular [Recovered/Resolved]
  - Anaphylactic reaction [Recovered/Resolved]
  - Pruritus [Recovered/Resolved]
  - Face oedema [Recovered/Resolved]

NARRATIVE: CASE EVENT DATE: 20180110
